FAERS Safety Report 15662380 (Version 3)
Quarter: 2019Q1

REPORT INFORMATION
  Report Type: Spontaneous
  Country: US (occurrence: US)
  Receive Date: 20181127
  Receipt Date: 20190207
  Transmission Date: 20190417
  Serious: No
  Sender: FDA-Public Use
  Company Number: US-PFIZER INC-2017417277

PATIENT
  Age: 17 Year
  Sex: Male
  Weight: 36 kg

DRUGS (5)
  1. GENOTROPIN [Suspect]
     Active Substance: SOMATROPIN
     Indication: GROWTH FAILURE
     Dosage: 3.2 MG, DAILY
     Dates: start: 20131216
  2. GENOTROPIN [Suspect]
     Active Substance: SOMATROPIN
     Indication: CYSTINOSIS
     Dosage: 2.8 IU, DAILY
     Dates: start: 2016
  3. GENOTROPIN [Suspect]
     Active Substance: SOMATROPIN
     Indication: BODY HEIGHT BELOW NORMAL
     Dosage: UNK
     Dates: start: 20180822
  4. GENOTROPIN [Suspect]
     Active Substance: SOMATROPIN
     Indication: CHRONIC KIDNEY DISEASE
  5. GENOTROPIN [Suspect]
     Active Substance: SOMATROPIN
     Indication: RENAL IMPAIRMENT
     Dosage: 3.2 MG, 1X/DAY
     Dates: start: 2000

REACTIONS (12)
  - Blood potassium decreased [Unknown]
  - Product use in unapproved indication [Recovered/Resolved]
  - Device issue [Recovered/Resolved]
  - Blood urea increased [Unknown]
  - Blood creatinine increased [Unknown]
  - Blood uric acid decreased [Unknown]
  - Product dose omission [Recovered/Resolved]
  - Vomiting [Unknown]
  - Blood albumin decreased [Unknown]
  - Headache [Unknown]
  - Blood alkaline phosphatase increased [Unknown]
  - Serum ferritin increased [Unknown]

NARRATIVE: CASE EVENT DATE: 2016
